FAERS Safety Report 6033240-9 (Version None)
Quarter: 2009Q1

REPORT INFORMATION
  Report Type: 
  Country: None (occurrence: None)
  Receive Date: 20090109
  Receipt Date: 20081222
  Transmission Date: 20090719
  Serious: Yes (Other)
  Sender: FDA-Public Use
  Company Number: JP-PFIZER INC-2008100537

PATIENT

DRUGS (2)
  1. CHAMPIX [Suspect]
     Dosage: 1 MG, 2X/DAY
     Route: 048
     Dates: start: 20081031
  2. MEILAX [Concomitant]
     Dosage: UNK
     Route: 048
     Dates: start: 20081113

REACTIONS (1)
  - LOSS OF CONSCIOUSNESS [None]
